FAERS Safety Report 4280344-7 (Version None)
Quarter: 2004Q1

REPORT INFORMATION
  Report Type: 
  Country: None (occurrence: None)
  Receive Date: 20040126
  Receipt Date: 20040116
  Transmission Date: 20041129
  Serious: Yes (Hospitalization)
  Sender: FDA-Public Use
  Company Number: 2004-01-1038

PATIENT
  Age: 56 Year
  Sex: Male

DRUGS (1)
  1. INTRON A [Suspect]
     Indication: MULTIPLE MYELOMA

REACTIONS (5)
  - IMPAIRED HEALING [None]
  - MULTIPLE FRACTURES [None]
  - RENAL FAILURE [None]
  - ROAD TRAFFIC ACCIDENT [None]
  - STAPHYLOCOCCAL INFECTION [None]
